FAERS Safety Report 21731732 (Version 1)
Quarter: 2022Q4

REPORT INFORMATION
  Report Type: Other
  Country: CN (occurrence: CN)
  Receive Date: 20221215
  Receipt Date: 20221215
  Transmission Date: 20230113
  Serious: Yes (Life-Threatening)
  Sender: FDA-Public Use
  Company Number: CN-CHIESI-2022CHF06576

PATIENT
  Age: 0 Year
  Sex: Male
  Weight: .75 kg

DRUGS (1)
  1. CUROSURF [Suspect]
     Active Substance: PORACTANT ALFA
     Indication: Neonatal respiratory distress syndrome
     Dosage: 240 MILLIGRAM, QD
     Route: 038
     Dates: start: 20221123, end: 20221123

REACTIONS (2)
  - Cyanosis neonatal [Recovering/Resolving]
  - Oxygen saturation decreased [Recovering/Resolving]

NARRATIVE: CASE EVENT DATE: 20221123
